FAERS Safety Report 6489750-3 (Version None)
Quarter: 2009Q4

REPORT INFORMATION
  Report Type: 
  Country: None (occurrence: None)
  Receive Date: 20091207
  Receipt Date: 20091123
  Transmission Date: 20100525
  Serious: Yes (Hospitalization)
  Sender: FDA-Public Use
  Company Number: 2009AC000294

PATIENT
  Age: 82 Year
  Sex: Female

DRUGS (27)
  1. DIGOXIN [Suspect]
     Dosage: 0.25 MG, QD, PO
     Route: 048
     Dates: start: 20080225
  2. COUMADIN [Concomitant]
  3. ASPIRIN [Concomitant]
  4. CARTIA XT [Concomitant]
  5. CLONIDINE [Concomitant]
  6. HYDROCHLOROTHIAZIDE [Concomitant]
  7. VYTORIN [Concomitant]
  8. FISH OIL [Concomitant]
  9. THYROID TAB [Concomitant]
  10. PREDNISONE [Concomitant]
  11. NEURO B-12 [Concomitant]
  12. CALCIUM [Concomitant]
  13. AMBIEN [Concomitant]
  14. ULTRAM [Concomitant]
  15. CILOSTAZOL [Concomitant]
  16. TOPROL-XL [Concomitant]
  17. HYZAAR [Concomitant]
  18. SIMVASTATIN [Concomitant]
  19. DOCUSATE [Concomitant]
  20. SYNTHROID [Concomitant]
  21. AMLODIPINE [Concomitant]
  22. METOPROLOL TARTRATE [Concomitant]
  23. TRAMADOL HCL [Concomitant]
  24. PREDNISONE [Concomitant]
  25. ZOLPIDEM [Concomitant]
  26. LIDODERM [Concomitant]
  27. WARFARIN SODIUM [Concomitant]

REACTIONS (25)
  - ACTINIC KERATOSIS [None]
  - AFFECT LABILITY [None]
  - ASTHENIA [None]
  - ATRIAL FIBRILLATION [None]
  - AUTONOMIC NERVOUS SYSTEM IMBALANCE [None]
  - BASAL CELL CARCINOMA [None]
  - BLOOD PRESSURE FLUCTUATION [None]
  - CARDIAC FLUTTER [None]
  - CONFUSIONAL STATE [None]
  - CORONARY ARTERY DISEASE [None]
  - DYSPNOEA [None]
  - ECONOMIC PROBLEM [None]
  - EYE HAEMORRHAGE [None]
  - GAIT DISTURBANCE [None]
  - HYPOTENSION [None]
  - LENTIGO [None]
  - MULTIPLE INJURIES [None]
  - NEOPLASM SKIN [None]
  - OEDEMA [None]
  - PERIPHERAL VASCULAR DISORDER [None]
  - RASH [None]
  - SURGERY [None]
  - THERAPEUTIC AGENT TOXICITY [None]
  - TRANSIENT ISCHAEMIC ATTACK [None]
  - VISION BLURRED [None]
